FAERS Safety Report 12058995 (Version 1)
Quarter: 2016Q1

REPORT INFORMATION
  Report Type: Spontaneous
  Country: US (occurrence: US)
  Receive Date: 20160209
  Receipt Date: 20160209
  Transmission Date: 20160526
  Serious: No
  Sender: FDA-Public Use
  Company Number: US-BIOGEN-2015BI155545

PATIENT
  Age: 56 Year
  Sex: Female
  Weight: 89.8 kg

DRUGS (3)
  1. AMPYRA [Concomitant]
     Active Substance: DALFAMPRIDINE
     Dates: start: 2012
  2. AVONEX [Suspect]
     Active Substance: INTERFERON BETA-1A
     Indication: PRODUCT USED FOR UNKNOWN INDICATION
     Route: 065
     Dates: end: 201208
  3. AMPYRA [Concomitant]
     Active Substance: DALFAMPRIDINE
     Indication: MULTIPLE SCLEROSIS
     Route: 048
     Dates: start: 20100901, end: 20101001

REACTIONS (14)
  - Balance disorder [Recovered/Resolved]
  - Fall [Recovered/Resolved]
  - Asthenia [Not Recovered/Not Resolved]
  - Candida infection [Unknown]
  - Malaise [Not Recovered/Not Resolved]
  - Fatigue [Unknown]
  - Nightmare [Recovered/Resolved]
  - Psychosomatic disease [Unknown]
  - Panic attack [Recovered/Resolved]
  - Dizziness [Recovered/Resolved]
  - Laceration [Unknown]
  - Anxiety [Unknown]
  - Insomnia [Recovered/Resolved]
  - Neck injury [Unknown]

NARRATIVE: CASE EVENT DATE: 20101001
